FAERS Safety Report 21990416 (Version 1)
Quarter: 2023Q1

REPORT INFORMATION
  Report Type: Spontaneous
  Country: US (occurrence: None)
  Receive Date: 20230213
  Receipt Date: 20230213
  Transmission Date: 20230417
  Serious: Yes (Death)
  Sender: FDA-Public Use
  Company Number: None

PATIENT
  Age: 25 Year
  Sex: Male

DRUGS (14)
  1. EMFLAZA [Suspect]
     Active Substance: DEFLAZACORT
     Indication: Duchenne muscular dystrophy
     Dosage: FREQUENCY : DAILY;?
     Route: 048
     Dates: start: 20170721, end: 20230125
  2. EMFLAZA [Suspect]
     Active Substance: DEFLAZACORT
     Indication: Becker^s muscular dystrophy
  3. OMEPRAZOLE [Concomitant]
     Active Substance: OMEPRAZOLE
  4. LISINOPRIL [Concomitant]
     Active Substance: LISINOPRIL
  5. SENNOSIDES [Concomitant]
     Active Substance: SENNOSIDES
  6. CARVEDILOL [Concomitant]
     Active Substance: CARVEDILOL
  7. SUCRALFATE [Concomitant]
     Active Substance: SUCRALFATE
  8. DICLOFENAC TOP GEL [Concomitant]
  9. ALBUTEROL SULFATE [Concomitant]
     Active Substance: ALBUTEROL SULFATE
  10. LACTULOSE [Concomitant]
     Active Substance: LACTULOSE
  11. VITAMINS [Concomitant]
     Active Substance: VITAMINS
  12. VITAMIN D2 [Concomitant]
     Active Substance: ERGOCALCIFEROL
  13. CALCIUM [Concomitant]
     Active Substance: CALCIUM
  14. RECLAST [Concomitant]
     Active Substance: ZOLEDRONIC ACID

REACTIONS (1)
  - Cardiac arrest [None]

NARRATIVE: CASE EVENT DATE: 20230125
